FAERS Safety Report 8304567-2 (Version None)
Quarter: 2012Q2

REPORT INFORMATION
  Report Type: 
  Country: None (occurrence: None)
  Receive Date: 20120423
  Receipt Date: 20120418
  Transmission Date: 20120825
  Serious: Yes (Hospitalization)
  Sender: FDA-Public Use
  Company Number: FR-GLAXOSMITHKLINE-B0791772A

PATIENT
  Sex: Male

DRUGS (15)
  1. VIREAD [Concomitant]
     Indication: HEPATITIS B VIRUS TEST POSITIVE
     Route: 065
     Dates: start: 20090401
  2. ASPIRIN [Concomitant]
     Route: 065
  3. AMIKACIN [Concomitant]
     Indication: DEVICE RELATED INFECTION
     Route: 065
  4. OFLOXACIN [Suspect]
     Indication: DEVICE RELATED INFECTION
     Dosage: 200MG PER DAY
     Route: 048
     Dates: start: 20120207, end: 20120223
  5. MYFORTIC [Concomitant]
     Route: 065
  6. ORBENIN CAP [Suspect]
     Indication: DEVICE RELATED INFECTION
     Dosage: 1G THREE TIMES PER DAY
     Route: 048
     Dates: start: 20120208, end: 20120223
  7. LEVOTHYROXINE SODIUM [Concomitant]
     Route: 065
  8. CINACALCET HYDROCHLORIDE [Concomitant]
     Route: 065
  9. VANCOMYCIN [Concomitant]
     Indication: DEVICE RELATED INFECTION
     Route: 065
  10. AMLODIPINE BESYLATE [Concomitant]
     Route: 065
  11. LAMIVUDINE [Suspect]
     Indication: HEPATITIS B VIRUS TEST POSITIVE
     Dosage: 100MG PER DAY
     Route: 048
     Dates: start: 20090401, end: 20120218
  12. PROGRAF [Concomitant]
     Route: 065
  13. CITALOPRAM HYDROBROMIDE [Concomitant]
     Route: 065
  14. LAMICTAL [Concomitant]
     Route: 065
  15. PREDNISOLONE [Concomitant]
     Route: 065

REACTIONS (1)
  - PANCYTOPENIA [None]
